FAERS Safety Report 5816521-0 (Version None)
Quarter: 2008Q3

REPORT INFORMATION
  Report Type: 
  Country: None (occurrence: None)
  Receive Date: 20080717
  Receipt Date: 20080717
  Transmission Date: 20090109
  Serious: Yes (Hospitalization)
  Sender: FDA-Public Use
  Company Number: None

PATIENT
  Age: 89 Year
  Sex: Female
  Weight: 50 kg

DRUGS (2)
  1. LINEZOLID [Suspect]
     Indication: INFECTION
     Dosage: 600 MG Q12H PO
     Route: 048
     Dates: start: 20080626, end: 20080703
  2. CYCLOBENZAPRINE HCL [Suspect]
     Indication: MUSCLE SPASMS
     Dosage: 5 MG TID PO
     Route: 048
     Dates: start: 20080626, end: 20080703

REACTIONS (2)
  - CONFUSIONAL STATE [None]
  - HYPERPYREXIA [None]
